FAERS Safety Report 4714319-8 (Version None)
Quarter: 2005Q3

REPORT INFORMATION
  Report Type: 
  Country: None (occurrence: None)
  Receive Date: 20050701
  Receipt Date: 20050510
  Transmission Date: 20060218
  Serious: Yes (Other)
  Sender: FDA-Public Use
  Company Number: 142084USA

PATIENT
  Age: 49 Year
  Sex: Male
  Weight: 84.8226 kg

DRUGS (5)
  1. LEUCOVORIN [Suspect]
     Indication: RECTAL CANCER STAGE IV
     Dosage: 350 MILLIGRAM INTRAVENOUS (NOS)
     Route: 042
     Dates: start: 20050202
  2. ELOXATIN [Suspect]
     Indication: RECTAL CANCER STAGE IV
     Dosage: 150 MILLIGRAM INTRAVENOUS (NOS)
     Route: 042
     Dates: start: 20050202
  3. FLUOROURACIL [Suspect]
     Indication: RECTAL CANCER STAGE IV
     Dates: start: 20050202
  4. DEXAMETHASONE [Concomitant]
  5. ZOFRAN [Concomitant]

REACTIONS (6)
  - ERYTHEMA [None]
  - FLUSHING [None]
  - HYPERSENSITIVITY [None]
  - OEDEMA PERIPHERAL [None]
  - PRURITUS [None]
  - URTICARIA [None]
